FAERS Safety Report 4639141-2 (Version None)
Quarter: 2005Q2

REPORT INFORMATION
  Report Type: 
  Country: None (occurrence: None)
  Receive Date: 20050418
  Receipt Date: 20050407
  Transmission Date: 20051028
  Serious: Yes (Other)
  Sender: FDA-Public Use
  Company Number: 2005-04-0356

PATIENT
  Age: 46 Year
  Sex: Male
  Weight: 60 kg

DRUGS (2)
  1. INTRON A [Suspect]
     Indication: CHRONIC MYELOID LEUKAEMIA
     Dosage: 6 MIU INTRAMUSCULAR
     Route: 030
     Dates: start: 19971001, end: 20040301
  2. HYDREA [Concomitant]

REACTIONS (1)
  - NON-HODGKIN'S LYMPHOMA [None]
